FAERS Safety Report 5274020-1 (Version None)
Quarter: 2007Q1

REPORT INFORMATION
  Report Type: 
  Country: None (occurrence: None)
  Receive Date: 20070323
  Receipt Date: 20070320
  Transmission Date: 20070707
  Serious: Yes (Hospitalization)
  Sender: FDA-Public Use
  Company Number: DE-GLAXOSMITHKLINE-D0052543A

PATIENT
  Age: 80 Year
  Sex: Female
  Weight: 71 kg

DRUGS (5)
  1. AVANDAMET [Suspect]
     Dosage: 502MG TWICE PER DAY
     Route: 048
     Dates: start: 20050801
  2. TELMISARTAN + HYDROCHLOROTHIAZIDE [Concomitant]
     Indication: HYPERTENSION
     Dosage: 92.5MG PER DAY
     Route: 048
     Dates: start: 20041209
  3. NEBILET [Concomitant]
     Indication: HYPERTENSION
     Dosage: 5MG PER DAY
     Route: 048
     Dates: start: 20051111
  4. SIMVASTATIN [Concomitant]
     Dosage: 30MG PER DAY
     Route: 048
     Dates: start: 20060823
  5. FUROSEMIDE [Concomitant]
     Dosage: 30MG PER DAY
     Route: 048
     Dates: start: 20060426

REACTIONS (2)
  - FALL [None]
  - RADIUS FRACTURE [None]
